FAERS Safety Report 18774083 (Version 3)
Quarter: 2021Q1

REPORT INFORMATION
  Report Type: Spontaneous
  Country: JP (occurrence: JP)
  Receive Date: 20210122
  Receipt Date: 20210226
  Transmission Date: 20210419
  Serious: Yes (Hospitalization, Other)
  Sender: FDA-Public Use
  Company Number: JP-TEVA-2021-JP-1871726

PATIENT
  Age: 64 Year
  Sex: Male
  Weight: 69 kg

DRUGS (8)
  1. URSODEOXYCHOLIC ACID [Concomitant]
     Active Substance: URSODIOL
  2. FOLIAMIN [Concomitant]
     Active Substance: FOLIC ACID
  3. MADOPAR [Concomitant]
     Active Substance: BENSERAZIDE HYDROCHLORIDE\LEVODOPA
     Dosage: 2 T (ON MORNING AND AT NOON)
     Dates: start: 20200207
  4. ALLOPURINOL. [Concomitant]
     Active Substance: ALLOPURINOL
  5. PROGRAF [Concomitant]
     Active Substance: TACROLIMUS
  6. AZILECT [Suspect]
     Active Substance: RASAGILINE MESYLATE
     Indication: PARKINSON^S DISEASE
     Dosage: 1 MILLIGRAM DAILY; QD
     Route: 048
     Dates: start: 20200306
  7. ALLELOCK [Suspect]
     Active Substance: OLOPATADINE HYDROCHLORIDE
     Indication: RHINITIS ALLERGIC
     Dosage: BID
     Route: 048
     Dates: end: 20210114
  8. RHEUMATREX [Concomitant]
     Active Substance: METHOTREXATE SODIUM

REACTIONS (3)
  - Depressed level of consciousness [Recovered/Resolved]
  - Somnolence [Recovered/Resolved]
  - Dyskinesia [Unknown]

NARRATIVE: CASE EVENT DATE: 2020
